FAERS Safety Report 7628512-8 (Version None)
Quarter: 2011Q3

REPORT INFORMATION
  Report Type: 
  Country: None (occurrence: None)
  Receive Date: 20110722
  Receipt Date: 20110711
  Transmission Date: 20111222
  Serious: Yes (Other)
  Sender: FDA-Public Use
  Company Number: US-AMGEN-USASP2011032584

PATIENT
  Age: 40 Year
  Sex: Female

DRUGS (3)
  1. ENBREL [Suspect]
     Indication: PSORIASIS
     Dosage: 50 MG, QWK
     Route: 058
     Dates: start: 20060519
  2. LEVOTHYROXINE SODIUM [Concomitant]
     Dosage: UNK
     Dates: start: 20080801
  3. ALLEGRA [Concomitant]
     Dosage: UNK UNK, PRN

REACTIONS (3)
  - ABORTION SPONTANEOUS [None]
  - INTRA-UTERINE DEATH [None]
  - PSORIASIS [None]
